FAERS Safety Report 4627704-X (Version None)
Quarter: 2005Q2

REPORT INFORMATION
  Report Type: 
  Country: None (occurrence: None)
  Receive Date: 20050401
  Receipt Date: 20050314
  Transmission Date: 20051028
  Serious: Yes (Death, Hospitalization)
  Sender: FDA-Public Use
  Company Number: 30604

PATIENT
  Age: 50 Year
  Sex: Female

DRUGS (3)
  1. CHLORAMPHENICOL [Suspect]
     Indication: CONJUNCTIVITIS
     Route: 047
     Dates: start: 20040119, end: 20040126
  2. OMEPRAZOLE [Concomitant]
  3. TRANEXAMIC ACID [Concomitant]

REACTIONS (11)
  - APLASTIC ANAEMIA [None]
  - BRONCHOPNEUMONIA [None]
  - FUNGAL INFECTION [None]
  - LUNG CONSOLIDATION [None]
  - PATHOGEN RESISTANCE [None]
  - PHARYNGITIS [None]
  - PULMONARY CONGESTION [None]
  - PULMONARY HAEMORRHAGE [None]
  - PULMONARY OEDEMA [None]
  - SERUM SICKNESS [None]
  - SPLEEN CONGESTION [None]
